FAERS Safety Report 11842933 (Version 1)
Quarter: 2015Q4

REPORT INFORMATION
  Report Type: Spontaneous
  Country: FR (occurrence: FR)
  Receive Date: 20151216
  Receipt Date: 20151216
  Transmission Date: 20160305
  Serious: Yes (Other)
  Sender: FDA-Public Use
  Company Number: FR-BRISTOL-MYERS SQUIBB COMPANY-BMS-2015-084847

PATIENT
  Age: 66 Year
  Sex: Male

DRUGS (2)
  1. HYDREA [Suspect]
     Active Substance: HYDROXYUREA
     Indication: POLYCYTHAEMIA VERA
     Dosage: 2 DF, QD
     Route: 065
     Dates: start: 200109, end: 200704
  2. VERCYTE [Suspect]
     Active Substance: PIPOBROMAN
     Indication: POLYCYTHAEMIA VERA
     Dosage: UNK
     Route: 048
     Dates: start: 200704, end: 200805

REACTIONS (3)
  - Actinic keratosis [Not Recovered/Not Resolved]
  - Gouty arthritis [Unknown]
  - Anaemia [Unknown]

NARRATIVE: CASE EVENT DATE: 200704
